FAERS Safety Report 22605752 (Version 1)
Quarter: 2023Q2

REPORT INFORMATION
  Report Type: Spontaneous
  Country: IN (occurrence: IN)
  Receive Date: 20230615
  Receipt Date: 20230615
  Transmission Date: 20230722
  Serious: Yes (Other)
  Sender: FDA-Public Use
  Company Number: IN-BAXTER-2023BAX023955

PATIENT
  Age: 60 Year
  Sex: Male

DRUGS (7)
  1. FLUCONAZOLE [Suspect]
     Active Substance: FLUCONAZOLE
     Indication: Meningitis cryptococcal
     Dosage: 1200 MG/DAY
     Route: 065
  2. HEPARIN SODIUM [Suspect]
     Active Substance: HEPARIN SODIUM
     Route: 065
  3. AMPHOTERICIN B [Concomitant]
     Active Substance: AMPHOTERICIN B
     Indication: Meningitis cryptococcal
     Dosage: 10MG/KG SINGLE DOSE
     Route: 065
  4. FLUCYTOSINE [Concomitant]
     Active Substance: FLUCYTOSINE
     Indication: Meningitis cryptococcal
     Dosage: 6 GRAMS/DAY, STOPPED ON DAY 10
     Route: 065
  5. DEXAMETHASONE [Concomitant]
     Active Substance: DEXAMETHASONE
     Indication: Meningitis cryptococcal
     Dosage: 0.3 MG/KG FOR ONE WEEK FOLLOWED BY RAPID TAPER
     Route: 065
  6. TACROLIMUS [Concomitant]
     Active Substance: TACROLIMUS
     Indication: Meningitis cryptococcal
     Dosage: LOW DOSE 0.5 MG TWICE A DAY
     Route: 065
  7. ISAVUCONAZOLE [Concomitant]
     Active Substance: ISAVUCONAZOLE
     Indication: Meningitis cryptococcal
     Dosage: (200 MG THREE TIMES A DAY FOR 2 DAYS FOLLOWED BY 200 MG ONCE A DAY
     Route: 065

REACTIONS (5)
  - Renal impairment [Unknown]
  - Heparin-induced thrombocytopenia [Recovering/Resolving]
  - Electrocardiogram QT prolonged [Unknown]
  - Abnormal behaviour [Unknown]
  - Diarrhoea [Unknown]
